FAERS Safety Report 15067189 (Version 1)
Quarter: 2018Q2

REPORT INFORMATION
  Report Type: Report from Study
  Country: US (occurrence: US)
  Receive Date: 20180626
  Receipt Date: 20180626
  Transmission Date: 20180711
  Serious: Yes (Hospitalization)
  Sender: FDA-Public Use
  Company Number: US-PFIZER INC-2018147782

PATIENT
  Age: 63 Year
  Sex: Female

DRUGS (1)
  1. IBRANCE [Suspect]
     Active Substance: PALBOCICLIB
     Indication: BREAST CANCER METASTATIC
     Dosage: 125 MG, 1X/DAY
     Route: 048
     Dates: start: 20171209, end: 2018

REACTIONS (4)
  - Amnesia [Recovering/Resolving]
  - Neoplasm progression [Unknown]
  - Hyperglycaemia [Unknown]
  - Fatigue [Recovering/Resolving]

NARRATIVE: CASE EVENT DATE: 2018
